FAERS Safety Report 7790245-5 (Version None)
Quarter: 2011Q3

REPORT INFORMATION
  Report Type: 
  Country: None (occurrence: None)
  Receive Date: 20110930
  Receipt Date: 20110921
  Transmission Date: 20111222
  Serious: Yes (Hospitalization, Other)
  Sender: FDA-Public Use
  Company Number: BR-BRISTOL-MYERS SQUIBB COMPANY-16095143

PATIENT
  Age: 68 Year
  Sex: Female
  Weight: 101 kg

DRUGS (2)
  1. BIOFENAC [Concomitant]
     Indication: ARTHRALGIA
     Dates: start: 20100101
  2. IRBESARTAN + HYDROCHLOROTHIAZIDE [Suspect]
     Indication: HYPERTENSION
     Dosage: 1DF:300MG/12.5MG TAB
     Route: 048

REACTIONS (7)
  - DEPRESSION [None]
  - DYSPNOEA [None]
  - WEIGHT INCREASED [None]
  - GAIT DISTURBANCE [None]
  - BRADYCARDIA [None]
  - LUNG DISORDER [None]
  - THYROID DISORDER [None]
